FAERS Safety Report 4682114-4 (Version None)
Quarter: 2005Q2

REPORT INFORMATION
  Report Type: 
  Country: None (occurrence: None)
  Receive Date: 20050531
  Receipt Date: 20050308
  Transmission Date: 20051028
  Serious: No
  Sender: FDA-Public Use
  Company Number: FABR-10862

PATIENT
  Age: 23 Year
  Sex: Male
  Weight: 114.3 kg

DRUGS (5)
  1. FABRAZYME [Suspect]
     Indication: FABRY'S DISEASE
     Dosage: 115 MG Q2WKS IV
     Route: 042
     Dates: start: 20040402
  2. HYDROXYZINE [Concomitant]
  3. ACETAMINOPHEN [Concomitant]
  4. COMPAZINE [Concomitant]
  5. BENADRYL [Concomitant]

REACTIONS (3)
  - CHILLS [None]
  - FEELING COLD [None]
  - PARAESTHESIA [None]
